FAERS Safety Report 12250286 (Version 1)
Quarter: 2016Q2

REPORT INFORMATION
  Report Type: Spontaneous
  Country: BR (occurrence: BR)
  Receive Date: 20160408
  Receipt Date: 20160408
  Transmission Date: 20160815
  Serious: Yes (Life-Threatening)
  Sender: FDA-Public Use
  Company Number: PHHY2016BR045774

PATIENT
  Age: 65 Year
  Sex: Female
  Weight: 75 kg

DRUGS (1)
  1. DIOVAN TRIPLE [Suspect]
     Active Substance: AMLODIPINE BESYLATE\HYDROCHLOROTHIAZIDE\VALSARTAN
     Indication: HYPERTENSION
     Dosage: 1 DF, QD (160 MG VALSARTAN AND 5 MG AMLODIPINE AND 12.5 MG HYDROCHLOROTHIAZIDE)
     Route: 048
     Dates: start: 20121107, end: 201512

REACTIONS (5)
  - Oral pain [Recovering/Resolving]
  - Glossodynia [Recovering/Resolving]
  - Blood pressure increased [Recovering/Resolving]
  - Spinal pain [Recovering/Resolving]
  - Pain in extremity [Recovering/Resolving]
